FAERS Safety Report 8844204 (Version 1)
Quarter: 2012Q4

REPORT INFORMATION
  Report Type: 
  Country: BG (occurrence: BG)
  Receive Date: 20121016
  Receipt Date: 20121016
  Transmission Date: 20130627
  Serious: Yes (Other)
  Sender: FDA-Public Use
  Company Number: BG-PERRIGO-12BG008666

PATIENT
  Age: 50 Year
  Sex: Female

DRUGS (1)
  1. BROMOCRIPTINE MESYLATE [Suspect]
     Indication: PROLACTINOMA
     Dosage: cumulative dose 36g
     Route: 065

REACTIONS (6)
  - Aortic valve sclerosis [Unknown]
  - Aortic valve incompetence [Unknown]
  - Mitral valve incompetence [Unknown]
  - Tricuspid valve incompetence [Unknown]
  - Mitral valve sclerosis [Unknown]
  - Tricuspid valve sclerosis [Unknown]
